FAERS Safety Report 9519454 (Version 4)
Quarter: 2013Q4

REPORT INFORMATION
  Report Type: Spontaneous
  Country: ES (occurrence: ES)
  Receive Date: 20130912
  Receipt Date: 20131023
  Transmission Date: 20140711
  Serious: Yes (Other)
  Sender: FDA-Public Use
  Company Number: ES-GLAXOSMITHKLINE-B0922116A

PATIENT
  Age: 38 Year
  Sex: Female

DRUGS (2)
  1. TYVERB [Suspect]
     Indication: BREAST CANCER
     Route: 048
  2. XELODA [Suspect]
     Indication: BREAST CANCER
     Route: 048

REACTIONS (2)
  - Arteriospasm coronary [Recovered/Resolved]
  - Angina pectoris [Recovered/Resolved]
